FAERS Safety Report 4310413-4 (Version None)
Quarter: 2004Q1

REPORT INFORMATION
  Report Type: 
  Country: None (occurrence: None)
  Receive Date: 20040301
  Receipt Date: 20040219
  Transmission Date: 20041129
  Serious: Yes (Hospitalization)
  Sender: FDA-Public Use
  Company Number: HQWYE166819FEB04

PATIENT
  Age: 70 Year
  Sex: Male

DRUGS (1)
  1. CORDARONE [Suspect]
     Indication: ARRHYTHMIA
     Dosage: 200 MG 1X PER 1 DAY ORAL
     Route: 048
     Dates: end: 20040101

REACTIONS (3)
  - ANTIBODY TEST POSITIVE [None]
  - PNEUMONITIS [None]
  - WEIGHT DECREASED [None]
